FAERS Safety Report 18220364 (Version 7)
Quarter: 2021Q2

REPORT INFORMATION
  Report Type: Spontaneous
  Country: US (occurrence: US)
  Receive Date: 20200902
  Receipt Date: 20210420
  Transmission Date: 20210717
  Serious: Yes (Hospitalization)
  Sender: FDA-Public Use
  Company Number: US-HORIZON-TEP-1624-2020

PATIENT
  Sex: Female
  Weight: 58.97 kg

DRUGS (3)
  1. TEPEZZA [Suspect]
     Active Substance: TEPROTUMUMAB-TRBW
     Indication: ENDOCRINE OPHTHALMOPATHY
     Dosage: 20 MG/KG, EVERY 3 WEEKS
     Route: 042
     Dates: start: 202103
  2. ADVIL [Concomitant]
     Active Substance: IBUPROFEN
  3. METHIMAZOLE. [Concomitant]
     Active Substance: METHIMAZOLE

REACTIONS (4)
  - Inflammatory bowel disease [Recovering/Resolving]
  - Tinnitus [Not Recovered/Not Resolved]
  - Weight decreased [Recovering/Resolving]
  - Muscle spasms [Unknown]
